FAERS Safety Report 18853074 (Version 10)
Quarter: 2021Q4

REPORT INFORMATION
  Report Type: Spontaneous
  Country: FR (occurrence: FR)
  Receive Date: 20210205
  Receipt Date: 20211215
  Transmission Date: 20220303
  Serious: Yes (Hospitalization, Disabling, Other)
  Sender: FDA-Public Use
  Company Number: FR-002147023-NVSC2020FR327049

PATIENT
  Age: 52 Year
  Sex: Female
  Weight: 61 kg

DRUGS (63)
  1. ESTRADIOL [Suspect]
     Active Substance: ESTRADIOL
     Indication: Hyperandrogenism
     Dosage: 1 MILLIGRAM (1 MG (20 DAYS PER MONTH))
     Route: 065
     Dates: start: 200507, end: 201108
  2. ESTRADIOL [Suspect]
     Active Substance: ESTRADIOL
     Dosage: 1 DOSAGE FORM, QD (1 DF, QD FOR 20 DAYS  )
     Route: 065
     Dates: start: 20050713
  3. ESTRADIOL [Suspect]
     Active Substance: ESTRADIOL
     Dosage: 1 DOSAGE FORM, QD (1 DF, QD FOR 20 DAYS  )
     Route: 065
     Dates: start: 20060628
  4. ESTRADIOL [Suspect]
     Active Substance: ESTRADIOL
     Dosage: 1 DOSAGE FORM, QD (1 DF, QD FOR 20 DAYS  )
     Route: 065
     Dates: start: 20060808
  5. ESTRADIOL [Suspect]
     Active Substance: ESTRADIOL
     Dosage: 1 DF, QD FOR 20 DAYS (1 BOX OF 12. TO RESUME 6 TIMES)
     Route: 065
     Dates: start: 20070829
  6. ESTRADIOL [Suspect]
     Active Substance: ESTRADIOL
     Dosage: 1 DOSAGE FORM, QD (1 DF, QD FOR 20 DAYS  )
     Route: 065
     Dates: start: 20090901
  7. ESTRADIOL [Suspect]
     Active Substance: ESTRADIOL
     Dosage: 1 DOSAGE FORM, QD (1 DF, QD FOR 20 DAYS  )
     Route: 065
     Dates: start: 20100816
  8. CYPROTERONE [Suspect]
     Active Substance: CYPROTERONE
     Indication: Hyperandrogenism
     Dosage: UNK
     Route: 065
     Dates: start: 20090615
  9. CYPROTERONE [Suspect]
     Active Substance: CYPROTERONE
     Dosage: UNK
     Route: 065
     Dates: start: 201012
  10. CYPROTERONE [Suspect]
     Active Substance: CYPROTERONE
     Dosage: 50 MILLIGRAM
     Route: 065
     Dates: start: 20110404
  11. CYPROTERONE [Suspect]
     Active Substance: CYPROTERONE
     Dosage: UNK
     Route: 065
     Dates: start: 201104
  12. CYPROTERONE [Suspect]
     Active Substance: CYPROTERONE
     Dosage: 50 MILLIGRAM
     Route: 065
  13. CYPROTERONE [Suspect]
     Active Substance: CYPROTERONE
     Dosage: 50 MILLIGRAM
     Route: 065
     Dates: start: 20110606
  14. ESTROGENS [Suspect]
     Active Substance: ESTROGENS
     Indication: Product used for unknown indication
     Dosage: UNK
     Route: 065
  15. DESOGESTREL\ETHINYL ESTRADIOL [Suspect]
     Active Substance: DESOGESTREL\ETHINYL ESTRADIOL
     Indication: Hyperandrogenism
     Dosage: UNK (7 DAYS PER MONTH)
     Dates: start: 2000, end: 2004
  16. DESOGESTREL\ETHINYL ESTRADIOL [Suspect]
     Active Substance: DESOGESTREL\ETHINYL ESTRADIOL
     Dosage: 1 BOX OF 3 BLISTER PACKS. TO REPEAT 3 MONTHS
     Dates: start: 20000711
  17. DESOGESTREL\ETHINYL ESTRADIOL [Suspect]
     Active Substance: DESOGESTREL\ETHINYL ESTRADIOL
     Dosage: CYCLEANE 30, 1 BOX OF 3 BLISTER PACKS. TO REPEAT 4 TIMES
     Route: 065
     Dates: start: 20010822
  18. DESOGESTREL\ETHINYL ESTRADIOL [Suspect]
     Active Substance: DESOGESTREL\ETHINYL ESTRADIOL
     Dosage: 1 BOX OF 3 BLISTER PACKS.
     Route: 065
     Dates: start: 20020227
  19. DESOGESTREL\ETHINYL ESTRADIOL [Suspect]
     Active Substance: DESOGESTREL\ETHINYL ESTRADIOL
     Dosage: 1 BOX OF 3 BLISTER PACKS
     Route: 065
     Dates: start: 20021030
  20. DESOGESTREL\ETHINYL ESTRADIOL [Suspect]
     Active Substance: DESOGESTREL\ETHINYL ESTRADIOL
     Dosage: 1 BOX OF 3 BLISTER PACKS
     Route: 065
     Dates: start: 20030611
  21. DESOGESTREL\ETHINYL ESTRADIOL [Suspect]
     Active Substance: DESOGESTREL\ETHINYL ESTRADIOL
     Dosage: 1 BOX OF 3 BLISTER PACKS.
     Route: 065
     Dates: start: 20040107
  22. MIRENA [Suspect]
     Active Substance: LEVONORGESTREL
     Indication: Hyperandrogenism
     Dosage: UNK
     Route: 015
     Dates: start: 20040901, end: 20050913
  23. MIRENA [Suspect]
     Active Substance: LEVONORGESTREL
     Dosage: 1 UNIT SPASFON LYOC
     Dates: start: 20040707
  24. ETHINYL ESTRADIOL\LEVONORGESTREL [Suspect]
     Active Substance: ETHINYL ESTRADIOL\LEVONORGESTREL
     Indication: Product used for unknown indication
     Dosage: UNK
     Route: 065
  25. ETHINYL ESTRADIOL\LEVONORGESTREL [Suspect]
     Active Substance: ETHINYL ESTRADIOL\LEVONORGESTREL
     Dosage: 1 BOX OF 3 BLISTER PACKS
     Dates: start: 19980617, end: 19990213
  26. CYPROTERONE ACETATE [Suspect]
     Active Substance: CYPROTERONE ACETATE
     Indication: Hyperandrogenism
     Dosage: 0.5 DOSAGE FORM (0.5 DF, 20 DAYS PER MONTH   )
     Route: 065
     Dates: start: 20120828, end: 20130826
  27. CYPROTERONE ACETATE [Suspect]
     Active Substance: CYPROTERONE ACETATE
     Dosage: UNK (7 DAYS PER MONTH)
     Route: 065
     Dates: start: 2000, end: 2004
  28. CYPROTERONE ACETATE [Suspect]
     Active Substance: CYPROTERONE ACETATE
     Dosage: 0.5 DF (50 MG), 7 DAYS PER MONTH
     Route: 065
     Dates: start: 199806, end: 1999
  29. CYPROTERONE ACETATE [Suspect]
     Active Substance: CYPROTERONE ACETATE
     Dosage: 0.5 DOSAGE FORM (0.5 DF, 20 DAYS PER MONTH)
     Route: 065
     Dates: start: 201506
  30. CYPROTERONE ACETATE [Suspect]
     Active Substance: CYPROTERONE ACETATE
     Dosage: 0.5 DOSAGE FORM (0.5 DF, 20 DAYS PER MONTH)
     Route: 065
     Dates: start: 200507, end: 201108
  31. CYPROTERONE ACETATE [Suspect]
     Active Substance: CYPROTERONE ACETATE
     Dosage: 1 DF, QD FOR 7 FIRST DAYS OF CYCLEANE
     Route: 065
     Dates: start: 20020227
  32. CYPROTERONE ACETATE [Suspect]
     Active Substance: CYPROTERONE ACETATE
     Dosage: 0.5 DOSAGE FORM, QD,0.5 DF, QD
     Route: 065
     Dates: start: 20090901, end: 201108
  33. CYPROTERONE ACETATE [Suspect]
     Active Substance: CYPROTERONE ACETATE
     Dosage: 1 UNK
     Dates: start: 19990213
  34. CYPROTERONE ACETATE [Suspect]
     Active Substance: CYPROTERONE ACETATE
     Dosage: 1 DF, QD
     Dates: start: 19990723
  35. CYPROTERONE ACETATE [Suspect]
     Active Substance: CYPROTERONE ACETATE
     Dosage: 1 DF, QD FOR 7 FIRST DAYS OF CYCLEANE; 1 BOX TO REPEAT 6 TIMES
     Dates: start: 20030611
  36. CYPROTERONE ACETATE [Suspect]
     Active Substance: CYPROTERONE ACETATE
     Dosage: 0.5 DF, QD FOR 20 DAYS
     Dates: start: 20050713
  37. CYPROTERONE ACETATE [Suspect]
     Active Substance: CYPROTERONE ACETATE
     Dosage: 0.5 DF, QD FOR 20 DAYS
     Dates: start: 20060808
  38. CYPROTERONE ACETATE [Suspect]
     Active Substance: CYPROTERONE ACETATE
     Dosage: 1 DF, QD FOR 7 FIRST DAYS OF CYCLEANE
     Dates: start: 20040107
  39. CYPROTERONE ACETATE [Suspect]
     Active Substance: CYPROTERONE ACETATE
     Dosage: 1 DF, QD FOR 7 FIRST DAYS
     Dates: start: 20010822
  40. CYPROTERONE ACETATE [Suspect]
     Active Substance: CYPROTERONE ACETATE
     Dosage: 0.5 DF, QD
     Dates: start: 20100816
  41. CYPROTERONE ACETATE [Suspect]
     Active Substance: CYPROTERONE ACETATE
     Dosage: 0.5 DF, QD FOR 20 DAYS
     Dates: start: 20070829
  42. CYPROTERONE ACETATE [Suspect]
     Active Substance: CYPROTERONE ACETATE
     Dosage: 0.5 DF
     Dates: start: 20060628
  43. CYPROTERONE ACETATE [Suspect]
     Active Substance: CYPROTERONE ACETATE
     Dosage: 1 DF, QD
     Dates: start: 20021030
  44. ESTRADIOL [Suspect]
     Active Substance: ESTRADIOL
     Indication: Product used for unknown indication
     Dosage: UNK
     Route: 065
  45. MOTILIUM [Concomitant]
     Active Substance: DOMPERIDONE
     Indication: Product used for unknown indication
     Dosage: 1 DOSAGE FORM, QD (1 DF, TID)
  46. MOTILIUM [Concomitant]
     Active Substance: DOMPERIDONE
     Dosage: 3 DOSAGE FORM, QD (1 DF, TID   )
  47. KETOPROFEN [Concomitant]
     Active Substance: KETOPROFEN
     Indication: Product used for unknown indication
     Dosage: UNK
  48. ZOMIG [Concomitant]
     Active Substance: ZOLMITRIPTAN
     Indication: Migraine
     Dosage: 1 DOSAGE FORM (1 DF FOR MIGRAINE TO REPEAT ONE HOUR LATER IF NEEDED AND 4 TIMES)
     Route: 065
     Dates: start: 20010822
  49. ZOMIG [Concomitant]
     Active Substance: ZOLMITRIPTAN
     Dosage: 1 DOSAGE FORM
     Route: 065
     Dates: start: 20030611
  50. ZOMIG [Concomitant]
     Active Substance: ZOLMITRIPTAN
     Dosage: 1 DF (TO REPEAT 1 HOUR LATER IF NEEDED)
     Route: 065
     Dates: start: 20070829
  51. ZOMIG [Concomitant]
     Active Substance: ZOLMITRIPTAN
     Dosage: 1 DF (TO REPEAT 1 HOUR LATER IF NEEDED)
     Route: 065
  52. ZOMIG [Concomitant]
     Active Substance: ZOLMITRIPTAN
     Dosage: 1 DF (TO REPEAT 1 HOUR LATER IF NEEDED)
     Route: 065
     Dates: start: 20090901
  53. ZOMIG [Concomitant]
     Active Substance: ZOLMITRIPTAN
     Dosage: 1 DF (TO REPEAT 1 HR LATER IF NEEDED)
     Route: 065
     Dates: start: 20051006
  54. ZOMIG [Concomitant]
     Active Substance: ZOLMITRIPTAN
     Dosage: 1 DF (TO REPEAT ONE HOUR LATER IF NEEDED AND 4 TIMES)
     Route: 065
     Dates: start: 20020227
  55. ZOMIG [Concomitant]
     Active Substance: ZOLMITRIPTAN
     Dosage: 1 DF FOR MIGRAINE TO REPEAT ONE HOUR LATER IF NEEDED AND 4 TIMES
     Route: 065
     Dates: start: 20021030
  56. ZOMIG [Concomitant]
     Active Substance: ZOLMITRIPTAN
     Dosage: 1 DF (TO REPEAT 1 HOUR LATER IF NEEDED)
     Route: 065
     Dates: start: 20080919
  57. ZOMIG [Concomitant]
     Active Substance: ZOLMITRIPTAN
     Dosage: 1 DF FOR MIGRAINE
     Route: 065
     Dates: start: 20040107
  58. ZOMIG [Concomitant]
     Active Substance: ZOLMITRIPTAN
     Dosage: 1 DOSAGE FORM
     Dates: start: 19990318
  59. ZOMIG [Concomitant]
     Active Substance: ZOLMITRIPTAN
     Dosage: 1 DF (HOUR LATER IF NEEDED)
     Dates: start: 20060808
  60. ZOMIG [Concomitant]
     Active Substance: ZOLMITRIPTAN
     Dosage: 1 DF
     Dates: start: 19990213
  61. DUPHASTON [Concomitant]
     Active Substance: DYDROGESTERONE
     Indication: Product used for unknown indication
     Dosage: 2 DOSAGE FORM, QD (2 DF, QD FOR 10 DAYS)
     Route: 065
     Dates: start: 19990505
  62. POLYGYNAX VIRGO [Concomitant]
     Indication: Product used for unknown indication
     Dosage: UNK, GYNECOLOGICAL OVULE INTRODUCTION INTO VAGINA IN THE EVENING BEFORE GOING TO BED FOR 6 DAYS
  63. ESTRADIOL [Concomitant]
     Active Substance: ESTRADIOL
     Indication: Product used for unknown indication
     Dosage: 1 DOSAGE FORM, QD
     Dates: start: 19990505

REACTIONS (37)
  - Intracranial tumour haemorrhage [Recovered/Resolved]
  - Intracranial pressure increased [Recovered/Resolved]
  - Somnolence [Unknown]
  - Vomiting [Unknown]
  - Oedema [Recovered/Resolved]
  - Meningioma [Unknown]
  - Tumour haemorrhage [Unknown]
  - Cognitive disorder [Unknown]
  - Facial paralysis [Unknown]
  - Tension headache [Unknown]
  - Haemorrhage [Unknown]
  - Seizure [Unknown]
  - Squamous cell carcinoma of skin [Unknown]
  - Hypothermia [Unknown]
  - Epilepsy [Unknown]
  - Muscle tightness [Unknown]
  - Pain of skin [Unknown]
  - Skin depigmentation [Unknown]
  - Post procedural oedema [Unknown]
  - Pain [Unknown]
  - Skin lesion [Unknown]
  - Haematoma [Unknown]
  - Sleep disorder [Unknown]
  - Musculoskeletal stiffness [Unknown]
  - Psychomotor retardation [Unknown]
  - Feeling abnormal [Unknown]
  - Dysarthria [Unknown]
  - Aphasia [Unknown]
  - Pain in extremity [Unknown]
  - Language disorder [Unknown]
  - Arthralgia [Unknown]
  - Scar [Unknown]
  - Fatigue [Unknown]
  - Headache [Unknown]
  - Nausea [Unknown]
  - Migraine [Unknown]
  - Squamous cell carcinoma [Unknown]

NARRATIVE: CASE EVENT DATE: 20140101
